FAERS Safety Report 9421305 (Version 2)
Quarter: 2013Q3

REPORT INFORMATION
  Report Type: Spontaneous
  Country: US (occurrence: US)
  Receive Date: 20130725
  Receipt Date: 20130816
  Transmission Date: 20140515
  Serious: No
  Sender: FDA-Public Use
  Company Number: US-TEVA-421476USA

PATIENT
  Age: 39 Year
  Sex: Female
  Weight: 68.1 kg

DRUGS (4)
  1. PLAN B ONE-STEP [Suspect]
     Indication: POST COITAL CONTRACEPTION
     Dosage: 1.5 MILLIGRAM DAILY;
     Route: 048
     Dates: start: 20130618, end: 20130618
  2. PARAGARD [Suspect]
     Indication: CONTRACEPTION
     Route: 015
  3. SEROQUEL [Concomitant]
     Indication: DEPRESSION
  4. VALIUM [Concomitant]
     Indication: ANXIETY

REACTIONS (3)
  - Ovarian cyst [Not Recovered/Not Resolved]
  - Menstruation irregular [Recovered/Resolved]
  - Pelvic pain [Recovered/Resolved]
